FAERS Safety Report 6831124-7 (Version None)
Quarter: 2010Q3

REPORT INFORMATION
  Report Type: 
  Country: None (occurrence: None)
  Receive Date: 20100709
  Receipt Date: 20100709
  Transmission Date: 20110219
  Serious: Yes (Other)
  Sender: FDA-Public Use
  Company Number: None

PATIENT
  Age: 71 Year
  Sex: Male
  Weight: 86.1834 kg

DRUGS (1)
  1. NITROFURANTOIN MONOHYDRATE/MACROCRYSTALS [Suspect]
     Indication: URINARY TRACT INFECTION
     Dosage: 100MG TWICE DAILY PO
     Route: 048
     Dates: start: 20100706, end: 20100706

REACTIONS (10)
  - CHEST DISCOMFORT [None]
  - DECREASED APPETITE [None]
  - DEPRESSION [None]
  - DIARRHOEA [None]
  - DIZZINESS [None]
  - FEELING ABNORMAL [None]
  - FLUSHING [None]
  - GAIT DISTURBANCE [None]
  - HEADACHE [None]
  - NAUSEA [None]
